FAERS Safety Report 14356548 (Version 1)
Quarter: 2018Q1

REPORT INFORMATION
  Report Type: Report from Study
  Country: None (occurrence: AU)
  Receive Date: 20180105
  Receipt Date: 20180105
  Transmission Date: 20180509
  Serious: Yes (Hospitalization)
  Sender: FDA-Public Use
  Company Number: AU-ABBVIE-18K-008-2212878-00

PATIENT
  Age: 64 Year
  Sex: Male

DRUGS (1)
  1. DUODOPA [Suspect]
     Active Substance: CARBIDOPA\LEVODOPA
     Indication: PARKINSON^S DISEASE
     Dosage: 16HRLY INFUSION
     Route: 050
     Dates: start: 20160901

REACTIONS (4)
  - Vision blurred [Not Recovered/Not Resolved]
  - Fall [Not Recovered/Not Resolved]
  - Dizziness [Not Recovered/Not Resolved]
  - Device dislocation [Not Recovered/Not Resolved]

NARRATIVE: CASE EVENT DATE: 20171231
